FAERS Safety Report 8615037 (Version 3)
Quarter: 2013Q4

REPORT INFORMATION
  Report Type: Spontaneous
  Country: FR (occurrence: FR)
  Receive Date: 20120614
  Receipt Date: 20131106
  Transmission Date: 20140711
  Serious: Yes (Hospitalization, Other)
  Sender: FDA-Public Use
  Company Number: FR-009507513-1204FRA00033

PATIENT
  Age: 39 Year
  Sex: Female
  Weight: 79 kg

DRUGS (8)
  1. JANUVIA [Suspect]
     Indication: TYPE 2 DIABETES MELLITUS
     Dosage: 100 MG, QD
     Route: 048
     Dates: start: 200812, end: 20120318
  2. RASILEZ [Suspect]
     Route: 048
  3. INEGY [Suspect]
     Route: 048
  4. TRINORDIOL [Suspect]
     Route: 048
  5. BROMAZEPAM [Concomitant]
  6. MEDIATENSYL [Concomitant]
  7. MK-9378 [Concomitant]
     Indication: TYPE 2 DIABETES MELLITUS
  8. LOXEN [Concomitant]

REACTIONS (3)
  - Pancreatitis acute [Not Recovered/Not Resolved]
  - Hypertriglyceridaemia [Not Recovered/Not Resolved]
  - Hepatic neoplasm [Not Recovered/Not Resolved]
